FAERS Safety Report 23366177 (Version 1)
Quarter: 2024Q1

REPORT INFORMATION
  Report Type: Spontaneous
  Country: AU (occurrence: AU)
  Receive Date: 20240104
  Receipt Date: 20240104
  Transmission Date: 20240409
  Serious: Yes (Other)
  Sender: FDA-Public Use
  Company Number: AU-GE HEALTHCARE-2024CSU000150

PATIENT
  Age: 60 Year
  Sex: Female
  Weight: 118 kg

DRUGS (2)
  1. OMNIPAQUE [Suspect]
     Active Substance: IOHEXOL
     Indication: Computerised tomogram heart
     Dosage: 105 ML, SINGLE
     Route: 040
     Dates: start: 20240103, end: 20240103
  2. OMNIPAQUE [Suspect]
     Active Substance: IOHEXOL
     Indication: Chest pain

REACTIONS (2)
  - Sneezing [Recovered/Resolved]
  - Feeling hot [Recovered/Resolved]

NARRATIVE: CASE EVENT DATE: 20240103
